FAERS Safety Report 9299133 (Version 1)
Quarter: 2013Q2

REPORT INFORMATION
  Report Type: Other
  Country: AU (occurrence: AU)
  Receive Date: 20130520
  Receipt Date: 20130520
  Transmission Date: 20140414
  Serious: Yes (Death)
  Sender: FDA-Public Use
  Company Number: AU-MYLANLABS-2013S1010157

PATIENT
  Sex: Male

DRUGS (2)
  1. FEBUXOSTAT [Suspect]
     Route: 065
  2. ALLOPURINOL [Suspect]
     Route: 065

REACTIONS (1)
  - Hepatic failure [Fatal]
